FAERS Safety Report 7247103-4 (Version None)
Quarter: 2011Q1

REPORT INFORMATION
  Report Type: 
  Country: None (occurrence: None)
  Receive Date: 20110127
  Receipt Date: 20100503
  Transmission Date: 20110831
  Serious: No
  Sender: FDA-Public Use
  Company Number: US-BAUSCH-2010BL002478

PATIENT
  Age: 32 Year
  Sex: Female

DRUGS (1)
  1. ALAWAY [Suspect]
     Indication: SEASONAL ALLERGY
     Route: 047
     Dates: start: 20100503, end: 20100503

REACTIONS (2)
  - VISION BLURRED [None]
  - MYDRIASIS [None]
